FAERS Safety Report 7288266-4 (Version None)
Quarter: 2011Q1

REPORT INFORMATION
  Report Type: 
  Country: None (occurrence: None)
  Receive Date: 20110211
  Receipt Date: 20110207
  Transmission Date: 20110831
  Serious: Yes (Other)
  Sender: FDA-Public Use
  Company Number: JP-ROCHE-750391

PATIENT
  Age: 50 Year
  Sex: Female

DRUGS (8)
  1. CELLCEPT [Suspect]
     Indication: PROPHYLAXIS AGAINST TRANSPLANT REJECTION
     Dosage: NOTE: DOSAGE IS UNCERTAIN
     Route: 048
  2. HORMONES [Concomitant]
     Dosage: DRUG: ADRENAL HORMONE PREPARATIONS(ADRENAL HORMONE PREPARATIONS). NOTE: DOSAGE IS UNCERTAIN.
  3. BASILIXIMAB [Concomitant]
     Dosage: NOTE: DOSAGE IS UNCERTAIN
     Route: 042
  4. CYCLOSPORINE [Concomitant]
     Dosage: NOTE: DOSAGE IS UNCERTAIN
  5. HEPATITIS B IMMUNE GLOBULIN (HUMAN) [Concomitant]
     Dosage: DRUG NAME REPORTED AS GAMMA GLOBULIN (HUMAN NORMAL IMMUNOGLOBULIN) NOTE: DOSAGE IS UNCERTAIN
     Route: 042
  6. ALPROSTADIL [Concomitant]
     Dosage: NOTE: DOSAGE IS UNCERTAIN
     Route: 042
  7. TACROLIMUS [Suspect]
     Indication: PROPHYLAXIS AGAINST TRANSPLANT REJECTION
     Dosage: NOTE: DOSAGE IS UNCERTAIN.
     Route: 065
  8. NAFAMOSTAT MESILATE [Concomitant]
     Dosage: NOTE: DOSAGE IS UNCERTAIN
     Route: 042

REACTIONS (3)
  - ABDOMINAL WALL HAEMORRHAGE [None]
  - LIVER DISORDER [None]
  - THROMBOTIC MICROANGIOPATHY [None]
